FAERS Safety Report 4799738-6 (Version None)
Quarter: 2005Q4

REPORT INFORMATION
  Report Type: 
  Country: None (occurrence: None)
  Receive Date: 20051011
  Receipt Date: 20051011
  Transmission Date: 20060501
  Serious: Yes (Hospitalization)
  Sender: FDA-Public Use
  Company Number: None

PATIENT
  Age: 61 Year
  Sex: Male
  Weight: 63.5036 kg

DRUGS (6)
  1. IRINOTECAN HCL [Suspect]
     Indication: SMALL CELL LUNG CANCER STAGE UNSPECIFIED
     Dosage: [2 ND CYCLE STARTED 4/21/05]
     Dates: start: 20050421
  2. ONDANSETRON [Concomitant]
  3. DEXAMETHASONE [Concomitant]
  4. LOPERAMIDE [Concomitant]
  5. ERYTHROPOETIN [Concomitant]
  6. ATOPINE [Concomitant]

REACTIONS (3)
  - DIARRHOEA [None]
  - NAUSEA [None]
  - VOMITING [None]
